FAERS Safety Report 5058568-0 (Version None)
Quarter: 2006Q2

REPORT INFORMATION
  Report Type: 
  Country: None (occurrence: None)
  Receive Date: 20060627
  Receipt Date: 20060329
  Transmission Date: 20061013
  Serious: Yes (Life-Threatening)
  Sender: FDA-Public Use
  Company Number: 442618

PATIENT
  Age: 49 Year
  Sex: Female
  Weight: 117.9 kg

DRUGS (1)
  1. XELODA [Suspect]
     Indication: COLON CANCER METASTATIC
     Dosage: 2000 MG 2 PER DAY ORAL
     Route: 048
     Dates: start: 20060307, end: 20060310

REACTIONS (1)
  - ANGINA PECTORIS [None]
